FAERS Safety Report 4709228-4 (Version None)
Quarter: 2005Q3

REPORT INFORMATION
  Report Type: 
  Country: None (occurrence: None)
  Receive Date: 20050705
  Receipt Date: 20050616
  Transmission Date: 20060218
  Serious: Yes (Other)
  Sender: FDA-Public Use
  Company Number: 2005BL002401

PATIENT
  Age: 52 Year
  Sex: Male

DRUGS (2)
  1. RETISERT [Suspect]
     Indication: DIABETIC RETINAL OEDEMA
     Dosage: RIGHT EYE
     Route: 031
     Dates: start: 20020117
  2. HUMULIN 70/30 [Concomitant]

REACTIONS (2)
  - BLINDNESS UNILATERAL [None]
  - MACULAR SCAR [None]
